FAERS Safety Report 5750937-6 (Version None)
Quarter: 2008Q2

REPORT INFORMATION
  Report Type: 
  Country: None (occurrence: None)
  Receive Date: 20080528
  Receipt Date: 20080513
  Transmission Date: 20081010
  Serious: Yes (Death, Hospitalization)
  Sender: FDA-Public Use
  Company Number: GB-MERCK-0805GBR00087

PATIENT
  Age: 63 Year
  Sex: Male

DRUGS (8)
  1. ZOCOR [Suspect]
     Route: 048
  2. FUSIDIC ACID [Suspect]
     Route: 065
  3. ENALAPRIL MALEATE [Concomitant]
     Route: 065
  4. DIPYRIDAMOLE [Concomitant]
     Route: 065
  5. ASPIRIN [Concomitant]
     Route: 065
  6. BISOPROLOL [Concomitant]
     Route: 065
  7. RANITIDINE [Concomitant]
     Route: 065
  8. DICLOFENAC [Concomitant]
     Route: 065

REACTIONS (12)
  - AORTIC ANEURYSM [None]
  - COLITIS ISCHAEMIC [None]
  - DRUG INTERACTION [None]
  - HAEMORRHAGE [None]
  - METABOLIC DISORDER [None]
  - MYOCARDIAL INFARCTION [None]
  - MYOGLOBINURIA [None]
  - PERIPHERAL SENSORIMOTOR NEUROPATHY [None]
  - RENAL FAILURE ACUTE [None]
  - RHABDOMYOLYSIS [None]
  - SPLENIC RUPTURE [None]
  - STAPHYLOCOCCAL INFECTION [None]
